FAERS Safety Report 4398948-X (Version None)
Quarter: 2004Q3

REPORT INFORMATION
  Report Type: 
  Country: None (occurrence: None)
  Receive Date: 20040712
  Receipt Date: 20040630
  Transmission Date: 20050211
  Serious: No
  Sender: FDA-Public Use
  Company Number: 04H-163-0265543-00

PATIENT
  Sex: Female

DRUGS (1)
  1. MAGNESIUM SULFATE [Suspect]
     Dosage: 25 GM, GIVEN OVER 2.5 HOURS, INTRAVENOUS
     Route: 042

REACTIONS (4)
  - ACCIDENTAL OVERDOSE [None]
  - ASTHENIA [None]
  - MEDICATION ERROR [None]
  - PARALYSIS [None]
